FAERS Safety Report 9699258 (Version 1)
Quarter: 2013Q4

REPORT INFORMATION
  Report Type: Spontaneous
  Country: US (occurrence: US)
  Receive Date: 20131120
  Receipt Date: 20131120
  Transmission Date: 20140711
  Serious: No
  Sender: FDA-Public Use
  Company Number: US-GILEAD-2008-0015189

PATIENT
  Sex: Female
  Weight: 87.54 kg

DRUGS (19)
  1. LETAIRIS [Suspect]
     Indication: PULMONARY ARTERIAL HYPERTENSION
     Route: 048
     Dates: start: 20070822
  2. LASIX [Concomitant]
     Route: 048
  3. LISINOPRIL [Concomitant]
     Route: 048
  4. CARTIA XL [Concomitant]
     Route: 048
  5. METHOTREXATE [Concomitant]
     Route: 048
  6. PLAQUENIL [Concomitant]
     Route: 048
  7. NEURONTIN [Concomitant]
     Route: 048
  8. FLONASE [Concomitant]
     Route: 045
  9. SPIRIVA [Concomitant]
     Route: 055
  10. ADVAIR [Concomitant]
     Route: 055
  11. ATROVENT [Concomitant]
     Route: 055
  12. FOSAMAX [Concomitant]
     Route: 048
  13. COMPAZINE [Concomitant]
     Route: 048
  14. PROTONIX [Concomitant]
     Route: 048
  15. VALIUM [Concomitant]
     Route: 048
  16. AMBIEN [Concomitant]
     Route: 048
  17. PERCOCET [Concomitant]
     Route: 048
  18. OXYCONTIN [Concomitant]
     Route: 048
  19. FOLIC ACID [Concomitant]
     Route: 048

REACTIONS (1)
  - Skin discolouration [None]
